FAERS Safety Report 25074958 (Version 2)
Quarter: 2025Q2

REPORT INFORMATION
  Report Type: Spontaneous
  Country: GB (occurrence: GB)
  Receive Date: 20250313
  Receipt Date: 20250422
  Transmission Date: 20250716
  Serious: Yes (Other)
  Sender: PFIZER
  Company Number: GB-PFIZER INC-PV202500029532

PATIENT
  Age: 56 Year
  Sex: Female

DRUGS (1)
  1. GENOTROPIN [Suspect]
     Active Substance: SOMATROPIN
     Indication: Growth hormone deficiency
     Dosage: 0.4 MG EVERY OTHER DAY
     Dates: end: 202412

REACTIONS (1)
  - Limb operation [Recovered/Resolved]

NARRATIVE: CASE EVENT DATE: 20240101
